FAERS Safety Report 9942527 (Version 1)
Quarter: 2014Q1

REPORT INFORMATION
  Report Type: Report from Study
  Country: US (occurrence: US)
  Receive Date: 20140303
  Receipt Date: 20140303
  Transmission Date: 20141002
  Serious: No
  Sender: FDA-Public Use
  Company Number: US-ABBVIE-13P-163-1045011-00

PATIENT
  Age: 20 Year
  Sex: Female

DRUGS (6)
  1. HUMIRA [Suspect]
     Indication: CROHN^S DISEASE
     Dates: start: 20121106
  2. 6-MP [Concomitant]
     Indication: CROHN^S DISEASE
  3. BIRTH CONTROL PILL [Concomitant]
     Indication: PRODUCT USED FOR UNKNOWN INDICATION
  4. VITAMIN C [Concomitant]
     Indication: VITAMIN SUPPLEMENTATION
  5. B-12 [Concomitant]
     Indication: VITAMIN SUPPLEMENTATION
  6. IRON [Concomitant]
     Indication: MINERAL SUPPLEMENTATION

REACTIONS (4)
  - Incorrect dose administered [Unknown]
  - Muscle spasms [Unknown]
  - Headache [Unknown]
  - Wrong technique in drug usage process [Unknown]
